FAERS Safety Report 17692015 (Version 2)
Quarter: 2020Q4

REPORT INFORMATION
  Report Type: Spontaneous
  Country: FR (occurrence: FR)
  Receive Date: 20200422
  Receipt Date: 20201016
  Transmission Date: 20210113
  Serious: Yes (Hospitalization)
  Sender: FDA-Public Use
  Company Number: FR-GLAXOSMITHKLINE-FR2020065214

PATIENT
  Age: 76 Year
  Sex: Female
  Weight: 60 kg

DRUGS (7)
  1. AMOXICILLIN. [Suspect]
     Active Substance: AMOXICILLIN
     Indication: BRONCHITIS
     Dosage: UNK
     Route: 048
     Dates: start: 20200204, end: 20200218
  2. SERETIDE [Suspect]
     Active Substance: FLUTICASONE PROPIONATE\SALMETEROL XINAFOATE
     Indication: BRONCHITIS
     Dosage: UNK
     Route: 055
     Dates: start: 20200204, end: 20200218
  3. ELIQUIS [Suspect]
     Active Substance: APIXABAN
     Indication: ATRIAL FIBRILLATION
     Dosage: UNK
     Route: 048
     Dates: start: 20200227, end: 20200303
  4. DILTIAZEM HYDROCHLORIDE. [Suspect]
     Active Substance: DILTIAZEM HYDROCHLORIDE
     Indication: ATRIAL FIBRILLATION
     Dosage: UNK
     Route: 048
     Dates: start: 20200227, end: 20200303
  5. TAVANIC [Suspect]
     Active Substance: LEVOFLOXACIN
     Indication: BRONCHITIS
     Dosage: UNK
     Route: 048
     Dates: start: 20200218, end: 20200225
  6. EXOMUC [Suspect]
     Active Substance: ACETYLCYSTEINE
     Indication: BRONCHITIS
     Dosage: UNK
     Route: 048
     Dates: start: 20200204, end: 20200218
  7. BUDESONIDE. [Suspect]
     Active Substance: BUDESONIDE
     Indication: BRONCHITIS
     Dosage: UNK
     Route: 055
     Dates: start: 20200218, end: 20200224

REACTIONS (1)
  - Rash morbilliform [Recovered/Resolved]

NARRATIVE: CASE EVENT DATE: 20200302
